FAERS Safety Report 9594687 (Version 1)
Quarter: 2013Q3

REPORT INFORMATION
  Report Type: Spontaneous
  Country: US (occurrence: None)
  Receive Date: 20130927
  Receipt Date: 20130927
  Transmission Date: 20140515
  Serious: Yes (Hospitalization)
  Sender: FDA-Public Use
  Company Number: RB-56325-2013

PATIENT
  Age: 54 Year
  Sex: Male

DRUGS (3)
  1. SUBOXONE [Suspect]
     Indication: DRUG DEPENDENCE
     Dosage: (8 MG SUBOXONE FILM SUBLINGUAL)
     Route: 060
     Dates: end: 201306
  2. AMBIEN [Concomitant]
  3. PROTONIX [Concomitant]

REACTIONS (1)
  - Drug withdrawal syndrome [None]
